FAERS Safety Report 5271940-9 (Version None)
Quarter: 2007Q1

REPORT INFORMATION
  Report Type: 
  Country: None (occurrence: None)
  Receive Date: 20061219
  Receipt Date: 20060929
  Transmission Date: 20070707
  Serious: Yes (Hospitalization, Other)
  Sender: FDA-Public Use
  Company Number: US-JNJFOC-20060105215

PATIENT
  Age: 28 Year
  Sex: Female
  Weight: 177.81 kg

DRUGS (6)
  1. ORTHO EVRA [Suspect]
     Indication: DRUG USE FOR UNKNOWN INDICATION
     Dosage: TRANSDERMAL
     Route: 062
     Dates: start: 20041111, end: 20050101
  2. ALBUTEROL [Concomitant]
  3. RANITIDINE [Concomitant]
  4. FERREX (IRON PREPARATIONS) [Concomitant]
  5. PERCOCET 5/325 (OXYCOCET) [Concomitant]
  6. VOLTAREN [Concomitant]

REACTIONS (3)
  - ANAEMIA [None]
  - DEEP VEIN THROMBOSIS [None]
  - PULMONARY EMBOLISM [None]
